FAERS Safety Report 6134023-1 (Version None)
Quarter: 2009Q1

REPORT INFORMATION
  Report Type: 
  Country: None (occurrence: None)
  Receive Date: 20090217
  Receipt Date: 20081119
  Transmission Date: 20090719
  Serious: No
  Sender: FDA-Public Use
  Company Number: AEUSA200800284

PATIENT

DRUGS (1)
  1. PROLASTIN [Suspect]

REACTIONS (1)
  - ACCIDENTAL EXPOSURE [None]
